FAERS Safety Report 21919947 (Version 1)
Quarter: 2023Q1

REPORT INFORMATION
  Report Type: Spontaneous
  Country: US (occurrence: US)
  Receive Date: 20230127
  Receipt Date: 20230127
  Transmission Date: 20230417
  Serious: Yes (Hospitalization, Other)
  Sender: FDA-Public Use
  Company Number: US-Fresenius Medical Care Renal Therapies Group-FMC-2301-000077

PATIENT
  Age: 64 Year
  Sex: Female
  Weight: 101 kg

DRUGS (3)
  1. DELFLEX WITH DEXTROSE 1.5% LOW MAGNESIUM LOW CALCIUM [Suspect]
     Active Substance: CALCIUM CHLORIDE\DEXTROSE\MAGNESIUM CHLORIDE\SODIUM CHLORIDE\SODIUM LACTATE
     Indication: End stage renal disease
     Dosage: EXCHANGES = 5, FILL VOLUME = 2000 ML, DWELL TIME = 2.0 HOURS 25 MINUTES, LAST FILL = 2000 ML, DAYTIM
     Route: 033
  2. DELFLEX WITH DEXTROSE 2.5% LOW MAGNESIUM LOW CALCIUM [Suspect]
     Active Substance: CALCIUM CHLORIDE\DEXTROSE\MAGNESIUM CHLORIDE\SODIUM CHLORIDE\SODIUM LACTATE
     Indication: End stage renal disease
     Dosage: EXCHANGES = 5, FILL VOLUME = 2000 ML, DWELL TIME = 2.0 HOURS 25 MINUTES, LAST FILL = 2000 ML, DAYTIM
     Route: 033
  3. DELFLEX WITH DEXTROSE 4.25% LOW MAGNESIUM LOW CALCIUM [Suspect]
     Active Substance: CALCIUM CHLORIDE\DEXTROSE\MAGNESIUM CHLORIDE\SODIUM CHLORIDE\SODIUM LACTATE
     Indication: End stage renal disease
     Dosage: EXCHANGES = 5, FILL VOLUME = 2000 ML, DWELL TIME = 2.0 HOURS 25 MINUTES, LAST FILL = 2000 ML, DAYTIM
     Route: 033

REACTIONS (1)
  - Peritonitis bacterial [Recovering/Resolving]
